FAERS Safety Report 23388297 (Version 1)
Quarter: 2024Q1

REPORT INFORMATION
  Report Type: Report from Study
  Country: US (occurrence: US)
  Receive Date: 20240110
  Receipt Date: 20240110
  Transmission Date: 20240410
  Serious: No
  Sender: FDA-Public Use
  Company Number: US-BIOVITRUM-2023-US-017154

PATIENT
  Age: 89 Year
  Sex: Male

DRUGS (3)
  1. DOPTELET [Suspect]
     Active Substance: AVATROMBOPAG MALEATE
     Indication: Immune thrombocytopenia
     Dosage: 20MG DAILY
     Route: 048
     Dates: start: 20230717
  2. DOPTELET [Suspect]
     Active Substance: AVATROMBOPAG MALEATE
     Dosage: DAILY
     Route: 048
     Dates: start: 202307
  3. DOPTELET [Suspect]
     Active Substance: AVATROMBOPAG MALEATE
     Dosage: TAKE ONLY 2 PER WEEK
     Route: 048
     Dates: start: 202307

REACTIONS (2)
  - Somnolence [Unknown]
  - Peripheral sensory neuropathy [Unknown]
